FAERS Safety Report 22653897 (Version 1)
Quarter: 2023Q2

REPORT INFORMATION
  Report Type: Other
  Country: CA (occurrence: None)
  Receive Date: 20230629
  Receipt Date: 20230629
  Transmission Date: 20230722
  Serious: No
  Sender: FDA-Public Use
  Company Number: CA-ROCHE-2497611

PATIENT
  Age: 44 Year
  Sex: Female

DRUGS (4)
  1. OCREVUS [Suspect]
     Active Substance: OCRELIZUMAB
     Indication: Relapsing-remitting multiple sclerosis
     Dosage: 300 MG AT DAY 0 AND 14, THEN 600 MG EVERY 6 MONTH
     Route: 042
     Dates: start: 20191121
  2. WELLBUTRIN SR [Concomitant]
     Active Substance: BUPROPION HYDROCHLORIDE
     Dosage: (2 MONTHS AGO)
  3. TYLENOL [Concomitant]
     Active Substance: ACETAMINOPHEN
  4. CONCERTA [Concomitant]
     Active Substance: METHYLPHENIDATE HYDROCHLORIDE

REACTIONS (15)
  - Infusion related reaction [Not Recovered/Not Resolved]
  - Myalgia [Unknown]
  - Oropharyngeal pain [Recovering/Resolving]
  - Headache [Unknown]
  - Fatigue [Not Recovered/Not Resolved]
  - Hyperhidrosis [Unknown]
  - Sinus congestion [Recovering/Resolving]
  - Insomnia [Not Recovered/Not Resolved]
  - Abdominal pain upper [Unknown]
  - Infusion related reaction [Recovering/Resolving]
  - Urinary tract infection [Recovering/Resolving]
  - Cognitive disorder [Not Recovered/Not Resolved]
  - Haemorrhage [Not Recovered/Not Resolved]
  - Oral herpes [Recovering/Resolving]
  - Disturbance in attention [Unknown]

NARRATIVE: CASE EVENT DATE: 20191121
